FAERS Safety Report 10247620 (Version 1)
Quarter: 2014Q2

REPORT INFORMATION
  Report Type: Spontaneous
  Country: US (occurrence: US)
  Receive Date: 20140619
  Receipt Date: 20140619
  Transmission Date: 20141212
  Serious: No
  Sender: FDA-Public Use
  Company Number: US-PFIZER INC-2014164293

PATIENT
  Age: 66 Year
  Sex: Female
  Weight: 90 kg

DRUGS (1)
  1. ADVIL MIGRAINE [Suspect]
     Indication: MIGRAINE
     Dosage: 200MG TWICE A DAY
     Dates: start: 20140612

REACTIONS (1)
  - Drug ineffective [Unknown]
